FAERS Safety Report 10706824 (Version 1)
Quarter: 2015Q1

REPORT INFORMATION
  Report Type: Spontaneous
  Country: US (occurrence: US)
  Receive Date: 20150113
  Receipt Date: 20150113
  Transmission Date: 20150721
  Serious: No
  Sender: FDA-Public Use
  Company Number: US-TEVA-533901USA

PATIENT
  Sex: Female

DRUGS (4)
  1. CITRUCEL [Concomitant]
     Active Substance: METHYLCELLULOSE (4000 MPA.S)
  2. NALTREXONE [Concomitant]
     Active Substance: NALTREXONE
  3. METOPROLOL [Concomitant]
     Active Substance: METOPROLOL
  4. COPAXONE [Suspect]
     Active Substance: GLATIRAMER ACETATE
     Indication: MULTIPLE SCLEROSIS
     Route: 058
     Dates: start: 20140313, end: 201412

REACTIONS (1)
  - Injection site reaction [Unknown]
